FAERS Safety Report 9699920 (Version 1)
Quarter: 2013Q4

REPORT INFORMATION
  Report Type: Spontaneous
  Country: US (occurrence: US)
  Receive Date: 20131121
  Receipt Date: 20131121
  Transmission Date: 20140711
  Serious: Yes (Other)
  Sender: FDA-Public Use
  Company Number: US-ROCHE-1306913

PATIENT
  Age: 32 Year
  Sex: Female

DRUGS (1)
  1. VEMURAFENIB [Suspect]
     Indication: METASTATIC MALIGNANT MELANOMA
     Dosage: TRATED FOR 3 MONTHS
     Route: 065

REACTIONS (1)
  - Radiation necrosis [Not Recovered/Not Resolved]
